FAERS Safety Report 22248737 (Version 3)
Quarter: 2023Q2

REPORT INFORMATION
  Report Type: Spontaneous
  Country: US (occurrence: US)
  Receive Date: 20230425
  Receipt Date: 20230613
  Transmission Date: 20230721
  Serious: Yes (Other)
  Sender: FDA-Public Use
  Company Number: US-AMGEN-USASP2023067616

PATIENT
  Age: 76 Year
  Sex: Female

DRUGS (3)
  1. TAVNEOS [Suspect]
     Active Substance: AVACOPAN
     Indication: Granulomatosis with polyangiitis
     Dosage: UNK
     Route: 065
     Dates: start: 20221229
  2. TAVNEOS [Suspect]
     Active Substance: AVACOPAN
     Dosage: 3 DOSAGE FORM, BID (THREE (3) CAPSULES BY MOUTH TWICE DAILY WITH FOOD)
     Route: 048
     Dates: start: 20230126
  3. TAVNEOS [Suspect]
     Active Substance: AVACOPAN
     Dosage: 1 DOSAGE FORM, QD (DECREASED TO ONE (1) CAPSULE PER DAY)
     Route: 048
     Dates: start: 2023

REACTIONS (6)
  - Hepatic cirrhosis [Unknown]
  - Liver disorder [Unknown]
  - Non-alcoholic fatty liver [Unknown]
  - Hepatic enzyme increased [Unknown]
  - Speech disorder [Unknown]
  - Hypoacusis [Unknown]

NARRATIVE: CASE EVENT DATE: 20230101
